FAERS Safety Report 5815029-6 (Version None)
Quarter: 2008Q3

REPORT INFORMATION
  Report Type: 
  Country: None (occurrence: None)
  Receive Date: 20080718
  Receipt Date: 20080709
  Transmission Date: 20090109
  Serious: Yes (Life-Threatening)
  Sender: FDA-Public Use
  Company Number: B0528645A

PATIENT
  Age: 52 Year
  Sex: Female

DRUGS (2)
  1. ARIXTRA [Suspect]
     Indication: VENA CAVA THROMBOSIS
     Dosage: 5MG PER DAY
     Route: 058
     Dates: start: 20080101
  2. ANTALGIC [Concomitant]
     Indication: PAIN
     Route: 042

REACTIONS (7)
  - ABDOMINAL PAIN [None]
  - DIZZINESS [None]
  - HYPERHIDROSIS [None]
  - MALAISE [None]
  - NAUSEA [None]
  - OEDEMA [None]
  - SPLENIC RUPTURE [None]
